FAERS Safety Report 9769807 (Version 2)
Quarter: 2013Q4

REPORT INFORMATION
  Report Type: Spontaneous
  Country: US (occurrence: US)
  Receive Date: 20131218
  Receipt Date: 20131218
  Transmission Date: 20140711
  Serious: No
  Sender: FDA-Public Use
  Company Number: US-VERTEX PHARMACEUTICALS INC-AE-2011-000471

PATIENT
  Sex: 0

DRUGS (9)
  1. INCIVEK [Suspect]
     Indication: HEPATITIS C
     Route: 048
     Dates: start: 20110707, end: 20110713
  2. PEGINTRON [Concomitant]
     Indication: HEPATITIS C
     Route: 058
     Dates: start: 20110707
  3. RIBAPAK [Concomitant]
     Indication: HEPATITIS C
     Route: 048
     Dates: start: 20110707
  4. KEPPRA [Concomitant]
     Indication: CONVULSION
     Route: 048
     Dates: start: 2005
  5. LOSARTAN [Concomitant]
     Indication: HYPERTENSION
     Route: 048
  6. FUROSEMIDE [Concomitant]
     Indication: DIURETIC THERAPY
     Route: 048
  7. KLORCON [Concomitant]
     Route: 048
  8. ADVAIR DISCUS [Concomitant]
     Indication: CHRONIC OBSTRUCTIVE PULMONARY DISEASE
     Route: 055
     Dates: start: 2002
  9. VENTOLIN INHALER [Concomitant]
     Indication: CHRONIC OBSTRUCTIVE PULMONARY DISEASE
     Route: 055
     Dates: start: 2002

REACTIONS (7)
  - Cutaneous lupus erythematosus [Unknown]
  - Bronchitis [Not Recovered/Not Resolved]
  - Skin reaction [Recovered/Resolved]
  - Diarrhoea [Not Recovered/Not Resolved]
  - Anorectal discomfort [Recovered/Resolved]
  - Haemorrhoids [Recovered/Resolved]
  - Rash [Recovered/Resolved]
